FAERS Safety Report 19430058 (Version 1)
Quarter: 2021Q2

REPORT INFORMATION
  Report Type: Spontaneous
  Country: FR (occurrence: FR)
  Receive Date: 20210617
  Receipt Date: 20210617
  Transmission Date: 20210717
  Serious: Yes (Hospitalization)
  Sender: FDA-Public Use
  Company Number: FR-JNJFOC-20210536053

PATIENT
  Age: 18 Year
  Sex: Female
  Weight: 55.9 kg

DRUGS (8)
  1. SPRAVATO [Suspect]
     Active Substance: ESKETAMINE
     Dates: start: 20210605
  2. TRANXENE [Concomitant]
     Active Substance: CLORAZEPATE DIPOTASSIUM
     Indication: ANXIETY DISORDER
     Route: 048
     Dates: start: 20200911
  3. MIRTAZAPINE. [Concomitant]
     Active Substance: MIRTAZAPINE
     Indication: DEPRESSION
     Route: 048
     Dates: start: 20210426
  4. SPRAVATO [Suspect]
     Active Substance: ESKETAMINE
     Indication: DEPRESSION
     Dates: start: 20210511, end: 20210605
  5. VENLAFAXINE [Concomitant]
     Active Substance: VENLAFAXINE HYDROCHLORIDE
     Indication: DEPRESSION
     Route: 048
     Dates: start: 20210419
  6. THERALENE [Concomitant]
     Active Substance: TRIMEPRAZINE
     Indication: SLEEP DISORDER
     Route: 048
     Dates: start: 20210211
  7. OLANZAPINE. [Concomitant]
     Active Substance: OLANZAPINE
     Indication: DEPRESSION
     Route: 048
     Dates: start: 20210303
  8. LITHIUM. [Suspect]
     Active Substance: LITHIUM
     Indication: DEPRESSION
     Route: 048
     Dates: start: 20201229, end: 20210601

REACTIONS (3)
  - Tremor [Recovered/Resolved]
  - Anxiety [Unknown]
  - Myalgia [Recovered/Resolved]

NARRATIVE: CASE EVENT DATE: 20210511
